FAERS Safety Report 7629095-9 (Version None)
Quarter: 2011Q3

REPORT INFORMATION
  Report Type: 
  Country: None (occurrence: None)
  Receive Date: 20110722
  Receipt Date: 20110722
  Transmission Date: 20111222
  Serious: Yes (Hospitalization, Other)
  Sender: FDA-Public Use
  Company Number: None

PATIENT
  Sex: Female
  Weight: 64.863 kg

DRUGS (1)
  1. MIRENA [Suspect]
     Indication: CONTRACEPTION

REACTIONS (6)
  - GALLBLADDER DISORDER [None]
  - ACNE CYSTIC [None]
  - INSULIN RESISTANCE [None]
  - WEIGHT INCREASED [None]
  - HAIR GROWTH ABNORMAL [None]
  - FLATULENCE [None]
